FAERS Safety Report 9459437 (Version 1)
Quarter: 2013Q3

REPORT INFORMATION
  Report Type: Spontaneous
  Country: JP (occurrence: JP)
  Receive Date: 20130815
  Receipt Date: 20130815
  Transmission Date: 20140515
  Serious: Yes (Hospitalization)
  Sender: FDA-Public Use
  Company Number: JP-ASTRAZENECA-2013SE50872

PATIENT
  Age: 27138 Day
  Sex: Female
  Weight: 46 kg

DRUGS (6)
  1. NEXIUM [Suspect]
     Indication: HELICOBACTER INFECTION
     Route: 048
     Dates: start: 20130617, end: 20130618
  2. PASETOCIN [Suspect]
     Indication: HELICOBACTER INFECTION
     Route: 048
     Dates: start: 20130617, end: 20130618
  3. CLARITH [Suspect]
     Indication: HELICOBACTER INFECTION
     Route: 048
     Dates: start: 20130617, end: 20130618
  4. LEBENIN [Suspect]
     Indication: DISBACTERIOSIS
     Route: 048
     Dates: start: 20130617, end: 20130619
  5. ALENDRONATE [Concomitant]
     Indication: OSTEOPOROSIS
     Route: 048
  6. PLATIBIT [Concomitant]
     Indication: OSTEOPOROSIS
     Route: 048

REACTIONS (1)
  - Acute generalised exanthematous pustulosis [Recovered/Resolved]
